FAERS Safety Report 25737603 (Version 1)
Quarter: 2025Q3

REPORT INFORMATION
  Report Type: Spontaneous
  Country: US (occurrence: US)
  Receive Date: 20250828
  Receipt Date: 20250828
  Transmission Date: 20251021
  Serious: Yes (Other)
  Sender: BAUSCH AND LOMB
  Company Number: US-BAUSCHBL-2025BNL014873

PATIENT
  Sex: Male

DRUGS (1)
  1. SOOTHE XP [Suspect]
     Active Substance: LIGHT MINERAL OIL\MINERAL OIL
     Indication: Product used for unknown indication
     Route: 065

REACTIONS (3)
  - Dementia [Unknown]
  - Burning sensation [Unknown]
  - Expired product administered [Unknown]
